FAERS Safety Report 19906680 (Version 1)
Quarter: 2021Q4

REPORT INFORMATION
  Report Type: Spontaneous
  Country: CN (occurrence: CN)
  Receive Date: 20211001
  Receipt Date: 20211001
  Transmission Date: 20220303
  Serious: Yes (Hospitalization)
  Sender: FDA-Public Use
  Company Number: CN-PFIZER INC-202101242788

PATIENT
  Age: 7 Year
  Sex: Female
  Weight: 22 kg

DRUGS (5)
  1. SOLU-MEDROL [Suspect]
     Active Substance: METHYLPREDNISOLONE SODIUM SUCCINATE
     Indication: Henoch-Schonlein purpura
     Dosage: 20.0 MG, 2X/DAY
     Route: 041
     Dates: start: 20210811, end: 20210816
  2. SOLU-MEDROL [Suspect]
     Active Substance: METHYLPREDNISOLONE SODIUM SUCCINATE
     Indication: Inflammation
     Dosage: 20.0 MG, 1X/DAY
     Route: 041
     Dates: start: 20210816, end: 20210823
  3. DIPYRIDAMOLE [Suspect]
     Active Substance: DIPYRIDAMOLE
     Dosage: 25 MG, 3X/DAY
     Route: 048
  4. DEXTROSE [Concomitant]
     Active Substance: DEXTROSE
     Indication: Vehicle solution use
     Dosage: 100 ML, 2X/DAY
     Route: 041
     Dates: start: 20210812, end: 20210816
  5. DEXTROSE [Concomitant]
     Active Substance: DEXTROSE
     Indication: Henoch-Schonlein purpura
     Dosage: 100.0 ML, 1X/DAY
     Route: 041
     Dates: start: 20210816, end: 20210823

REACTIONS (5)
  - Transaminases increased [Recovering/Resolving]
  - Condition aggravated [Recovering/Resolving]
  - Hepatic failure [Recovering/Resolving]
  - Drug-induced liver injury [Recovering/Resolving]
  - Hepatic function abnormal [Recovering/Resolving]

NARRATIVE: CASE EVENT DATE: 20210801
